FAERS Safety Report 12663478 (Version 1)
Quarter: 2016Q3

REPORT INFORMATION
  Report Type: Spontaneous
  Country: FR (occurrence: FR)
  Receive Date: 20160818
  Receipt Date: 20160818
  Transmission Date: 20161109
  Serious: Yes (Other)
  Sender: FDA-Public Use
  Company Number: FR-JNJFOC-20160812300

PATIENT
  Age: 70 Year
  Sex: Male

DRUGS (13)
  1. PREZISTA [Suspect]
     Active Substance: DARUNAVIR ETHANOLATE
     Indication: PRODUCT USED FOR UNKNOWN INDICATION
     Route: 048
     Dates: start: 2009
  2. KIVEXA [Concomitant]
     Active Substance: ABACAVIR SULFATE\LAMIVUDINE
     Route: 065
  3. ISOPTIN [Concomitant]
     Active Substance: VERAPAMIL HYDROCHLORIDE
     Route: 065
  4. INTERCYTON [Concomitant]
     Route: 065
  5. HYPERIUM [Concomitant]
     Active Substance: RILMENIDINE PHOSPHATE
     Dosage: BETWEEN END OF 2010 AND BEGININNG OF 2011
     Route: 065
  6. TRAVATAN [Concomitant]
     Active Substance: TRAVOPROST
     Route: 065
  7. IPRATROPIUM BROMIDE\FENOTEROL HYDROBROMIDE [Concomitant]
     Active Substance: FENOTEROL HYDROBROMIDE\IPRATROPIUM BROMIDE
     Indication: BRONCHITIS
     Route: 065
  8. COOLMETEC [Concomitant]
     Active Substance: HYDROCHLOROTHIAZIDE\OLMESARTAN MEDOXOMIL
     Route: 065
  9. NEBILOX [Concomitant]
     Active Substance: NEBIVOLOL HYDROCHLORIDE
     Indication: HYPERTENSION
     Route: 065
  10. GELTIM [Concomitant]
     Active Substance: TIMOLOL MALEATE
     Route: 065
  11. INNOVAIR [Interacting]
     Active Substance: BECLOMETHASONE DIPROPIONATE\FORMOTEROL
     Indication: BRONCHITIS
     Route: 065
     Dates: start: 2010, end: 2010
  12. ALDACTONE [Concomitant]
     Active Substance: SPIRONOLACTONE
     Dosage: BETWEEN END OF 2010 AND BEGININNG OF 2011
     Route: 065
  13. NORVIR [Interacting]
     Active Substance: RITONAVIR
     Indication: BRONCHITIS
     Route: 048
     Dates: start: 2000

REACTIONS (7)
  - Type 2 diabetes mellitus [Not Recovered/Not Resolved]
  - Hypertension [Recovered/Resolved]
  - Arthralgia [Unknown]
  - Muscle spasms [Unknown]
  - Blood glucose increased [Not Recovered/Not Resolved]
  - Drug interaction [Unknown]
  - Bronchitis [Recovered/Resolved]

NARRATIVE: CASE EVENT DATE: 201004
